FAERS Safety Report 9138818 (Version 1)
Quarter: 2013Q1

REPORT INFORMATION
  Report Type: Spontaneous
  Country: US (occurrence: US)
  Receive Date: 20130305
  Receipt Date: 20130305
  Transmission Date: 20140127
  Serious: Yes (Other)
  Sender: FDA-Public Use
  Company Number: US-ENDO PHARMACEUTICALS INC.-PERC20120109

PATIENT
  Sex: Female
  Weight: 73.55 kg

DRUGS (6)
  1. PERCOCET [Suspect]
     Indication: PAIN
     Dosage: UNK
     Route: 048
  2. CHANTIX [Concomitant]
     Indication: SMOKING CESSATION THERAPY
     Route: 048
     Dates: start: 2008
  3. ADVIL [Concomitant]
     Indication: PAIN
     Dosage: UNK
     Route: 048
  4. TYLENOL [Concomitant]
     Indication: PAIN
     Dosage: UNK
     Route: 048
  5. ALEVE [Concomitant]
     Indication: PAIN
     Dosage: UNK
     Route: 048
  6. DIAZEPAM [Concomitant]
     Indication: PAIN
     Dosage: UNK

REACTIONS (2)
  - Intentional drug misuse [Recovered/Resolved]
  - Feeling jittery [Unknown]
